FAERS Safety Report 9115694 (Version 1)
Quarter: 2013Q1

REPORT INFORMATION
  Report Type: Spontaneous
  Country: US (occurrence: US)
  Receive Date: 20130225
  Receipt Date: 20130225
  Transmission Date: 20140127
  Serious: Yes (Death)
  Sender: FDA-Public Use
  Company Number: US-PFIZER INC-2013066806

PATIENT
  Age: 23 Month
  Sex: 0
  Weight: 12.5 kg

DRUGS (8)
  1. PHENYTOIN [Suspect]
     Indication: CONVULSION
     Dosage: 125 MG/DAY
  2. PHENYTOIN [Interacting]
     Dosage: 100 MG/DAY
  3. CARBAMAZEPINE [Interacting]
     Indication: CONVULSION
     Dosage: 100 MG/DAY
  4. CARBAMAZEPINE [Interacting]
     Dosage: 150 MG/DAY
  5. CARBAMAZEPINE [Interacting]
     Dosage: 200 MG/DAY
  6. CARBAMAZEPINE [Interacting]
     Dosage: 300 MG/DAY
  7. CARBAMAZEPINE [Interacting]
     Dosage: 400 MG/DAY
  8. CARBAMAZEPINE [Interacting]
     Dosage: 500 MG/DAY

REACTIONS (3)
  - Overdose [Fatal]
  - Drug interaction [Fatal]
  - Toxicity to various agents [Fatal]
